FAERS Safety Report 25706293 (Version 1)
Quarter: 2025Q3

REPORT INFORMATION
  Report Type: Spontaneous
  Country: US (occurrence: None)
  Receive Date: 20250819
  Receipt Date: 20250819
  Transmission Date: 20251020
  Serious: Yes (Hospitalization)
  Sender: FDA-CTU
  Company Number: None

PATIENT
  Age: 9 Year
  Sex: Male

DRUGS (6)
  1. OPSUMIT [Suspect]
     Active Substance: MACITENTAN
     Indication: Pulmonary arterial hypertension
     Dosage: 10 MG DAILY ORAL
     Route: 048
     Dates: start: 20250503
  2. REMODULIN [Suspect]
     Active Substance: TREPROSTINIL
  3. REPLACE REMTY WTY PUMP KIT [Concomitant]
  4. LIDOCAINE/PRILOCAINE CRM [Concomitant]
  5. REMUNITY CART W/FILL AID [Concomitant]
  6. TRIAMCINOLONE ACET CRM [Concomitant]

REACTIONS (2)
  - Nasopharyngitis [None]
  - Viral infection [None]

NARRATIVE: CASE EVENT DATE: 20250818
